FAERS Safety Report 6154414-2 (Version None)
Quarter: 2009Q2

REPORT INFORMATION
  Report Type: 
  Country: None (occurrence: None)
  Receive Date: 20090414
  Receipt Date: 20090406
  Transmission Date: 20091009
  Serious: Yes (Hospitalization)
  Sender: FDA-Public Use
  Company Number: GB-AMGEN-US342574

PATIENT
  Sex: Female

DRUGS (2)
  1. ENBREL [Suspect]
     Indication: RHEUMATOID ARTHRITIS
     Dosage: 50MG, FREQUENCY UNSPECIFIED
     Route: 058
     Dates: start: 20080301, end: 20090331
  2. METHOTREXATE [Suspect]
     Dosage: 20MG, FREQUENCY UNSPECIFIED
     Route: 065
     Dates: end: 20090331

REACTIONS (3)
  - CONDITION AGGRAVATED [None]
  - EMOTIONAL DISTRESS [None]
  - INTENTIONAL OVERDOSE [None]
